FAERS Safety Report 8569336-7 (Version None)
Quarter: 2012Q3

REPORT INFORMATION
  Report Type: 
  Country: None (occurrence: None)
  Receive Date: 20120803
  Receipt Date: 20120229
  Transmission Date: 20120928
  Serious: No
  Sender: FDA-Public Use
  Company Number: US-ABBOTT-12P-163-0909999-00

PATIENT
  Sex: Female

DRUGS (3)
  1. AGGRENOX [Concomitant]
     Indication: PRODUCT USED FOR UNKNOWN INDICATION
     Dosage: TAKE 30 MINUTES BEFORE NIASPAN COATED
  2. CRESTOR [Concomitant]
     Indication: PRODUCT USED FOR UNKNOWN INDICATION
  3. NIASPAN [Suspect]
     Indication: CEREBROVASCULAR ACCIDENT
     Dosage: AT BED TIME

REACTIONS (1)
  - PRURITUS [None]
